FAERS Safety Report 4864199-5 (Version None)
Quarter: 2005Q4

REPORT INFORMATION
  Report Type: 
  Country: None (occurrence: None)
  Receive Date: 20051219
  Receipt Date: 20051208
  Transmission Date: 20060501
  Serious: Yes (Life-Threatening, Hospitalization, Other)
  Sender: FDA-Public Use
  Company Number: UKP05000412

PATIENT
  Age: 76 Year
  Sex: Female
  Weight: 76 kg

DRUGS (7)
  1. ACTONEL [Suspect]
     Indication: OSTEOPOROSIS
     Dosage: 35 MG, ORAL
     Route: 048
     Dates: start: 20040201
  2. CRESTOR [Suspect]
     Dosage: 10 MG, ORAL
     Route: 048
     Dates: start: 20030101
  3. CALCICHEW D3 (CALCIUM CARBONATE, COLECALCIFEROL) [Concomitant]
  4. ESOMEPRAZOLE (ESOMEPRAZOLE) [Concomitant]
  5. BENDROFLUAZIDE (BENDROFLUMETHIAZIDE) [Concomitant]
  6. MOXONIDINE (MOXONIDINE) [Concomitant]
  7. LISINOPRIL [Concomitant]

REACTIONS (1)
  - PANCREATITIS [None]
